FAERS Safety Report 7434019-3 (Version None)
Quarter: 2011Q2

REPORT INFORMATION
  Report Type: 
  Country: None (occurrence: None)
  Receive Date: 20110425
  Receipt Date: 20110407
  Transmission Date: 20111010
  Serious: Yes (Other)
  Sender: FDA-Public Use
  Company Number: US-BAYER-200934303NA

PATIENT
  Age: 70 Year
  Sex: Male
  Weight: 102.95 kg

DRUGS (23)
  1. DARVOCET [Concomitant]
     Indication: PRODUCT USED FOR UNKNOWN INDICATION
  2. LASIX [Concomitant]
     Indication: PRODUCT USED FOR UNKNOWN INDICATION
  3. EFFEXOR [Concomitant]
     Indication: PRODUCT USED FOR UNKNOWN INDICATION
     Dosage: 75 MG ONE NIGHTLY
  4. NITROGLYCERIN [Concomitant]
     Indication: PRODUCT USED FOR UNKNOWN INDICATION
     Dosage: UNK
     Dates: start: 20030717
  5. FENTANYL [Concomitant]
     Indication: PRODUCT USED FOR UNKNOWN INDICATION
     Dosage: 10
     Dates: start: 20030717
  6. NORCURON [Concomitant]
     Indication: PRODUCT USED FOR UNKNOWN INDICATION
     Dosage: 10
     Dates: start: 20030717
  7. HYTRIN [Concomitant]
     Indication: PRODUCT USED FOR UNKNOWN INDICATION
  8. ANECTINE [Concomitant]
     Indication: PRODUCT USED FOR UNKNOWN INDICATION
     Dosage: 100
     Dates: start: 20030717
  9. DOBUTAMINE HCL [Concomitant]
     Indication: PRODUCT USED FOR UNKNOWN INDICATION
     Dosage: 6MCG/KG/MIN DRIP
     Route: 042
     Dates: start: 20030717
  10. TRASYLOL [Suspect]
     Dosage: 100 CC LOADING DOSE
     Route: 042
     Dates: start: 20030717, end: 20030717
  11. APRESOLINE [Concomitant]
     Indication: PRODUCT USED FOR UNKNOWN INDICATION
  12. VERSED [Concomitant]
     Indication: PRODUCT USED FOR UNKNOWN INDICATION
     Dosage: 4
     Dates: start: 20030717
  13. HEPARIN [Concomitant]
     Indication: PRODUCT USED FOR UNKNOWN INDICATION
     Dosage: DRIP
  14. IMDUR [Concomitant]
     Indication: PRODUCT USED FOR UNKNOWN INDICATION
  15. INSULIN [Concomitant]
     Indication: PRODUCT USED FOR UNKNOWN INDICATION
     Dosage: DRIP
     Route: 042
     Dates: start: 20030717
  16. CATAPRES [Concomitant]
     Indication: PRODUCT USED FOR UNKNOWN INDICATION
  17. MUCOMYST [Concomitant]
     Indication: PRODUCT USED FOR UNKNOWN INDICATION
  18. PROTONIX [Concomitant]
     Indication: PRODUCT USED FOR UNKNOWN INDICATION
  19. ANCEF [Concomitant]
     Indication: PRODUCT USED FOR UNKNOWN INDICATION
     Dosage: 2 G, UNK
     Dates: start: 20030717
  20. TRASYLOL [Suspect]
     Indication: CORONARY ARTERY BYPASS
     Dosage: 1ML INITIAL (TEST) DOSE
     Route: 042
     Dates: start: 20030717, end: 20030717
  21. TRASYLOL [Suspect]
     Dosage: 25CC/HOUR
     Route: 042
     Dates: start: 20030717, end: 20030717
  22. HEPARIN [Concomitant]
     Dosage: 5-10CC/HR DRIP
     Dates: start: 20030717
  23. SODIUM THIOPENTAL MITSUBISHI [Concomitant]
     Indication: PRODUCT USED FOR UNKNOWN INDICATION
     Dosage: 80
     Dates: start: 20030717

REACTIONS (12)
  - ANXIETY [None]
  - PAIN [None]
  - DEPRESSION [None]
  - ANHEDONIA [None]
  - RENAL FAILURE [None]
  - FEAR [None]
  - EMOTIONAL DISTRESS [None]
  - RENAL INJURY [None]
  - INJURY [None]
  - UNEVALUABLE EVENT [None]
  - MULTI-ORGAN FAILURE [None]
  - NERVOUSNESS [None]
